FAERS Safety Report 8612179-6 (Version None)
Quarter: 2012Q3

REPORT INFORMATION
  Report Type: 
  Country: None (occurrence: None)
  Receive Date: 20120822
  Receipt Date: 20120820
  Transmission Date: 20120928
  Serious: Yes (Other)
  Sender: FDA-Public Use
  Company Number: US-BAYER-2012-086561

PATIENT

DRUGS (1)
  1. ALKA-SELTZER ORIGINAL [Suspect]
     Route: 048

REACTIONS (1)
  - DRUG DEPENDENCE [None]
